FAERS Safety Report 8832270 (Version 2)
Quarter: 2012Q4

REPORT INFORMATION
  Report Type: Report from Study
  Country: JP (occurrence: JP)
  Receive Date: 20121009
  Receipt Date: 20121029
  Transmission Date: 20130627
  Serious: Yes (Other)
  Sender: FDA-Public Use
  Company Number: JP-VERTEX PHARMACEUTICAL INC.-AE-2012-003591

PATIENT
  Age: 34 Year
  Sex: Male

DRUGS (7)
  1. VX-950 [Suspect]
     Indication: HEPATITIS C
     Dosage: 2250 mg, qd
     Route: 048
     Dates: start: 20120124, end: 20120416
  2. PEGINTRON                          /01543001/ [Suspect]
     Indication: HEPATITIS C
     Dosage: 1.62 ?g/kg, qw
     Route: 058
     Dates: start: 20120124, end: 20120227
  3. PEGINTRON                          /01543001/ [Suspect]
     Dosage: 60 ?g, qw
     Route: 058
     Dates: start: 20120228, end: 20120305
  4. PEGINTRON                          /01543001/ [Suspect]
     Dosage: 70 ?g, qw
     Route: 058
     Dates: start: 20120306
  5. PEGINTRON                          /01543001/ [Suspect]
     Dosage: 1.5 ?g/kg, qw
     Route: 058
     Dates: end: 20120703
  6. REBETOL [Suspect]
     Indication: HEPATITIS C
     Dosage: 600 mg, qd
     Route: 048
     Dates: start: 20120124, end: 20120206
  7. REBETOL [Suspect]
     Dosage: 400 mg, qd
     Route: 048
     Dates: start: 20120207, end: 20120710

REACTIONS (1)
  - White blood cell count decreased [Recovered/Resolved]
